FAERS Safety Report 4930314-8 (Version None)
Quarter: 2006Q1

REPORT INFORMATION
  Report Type: 
  Country: None (occurrence: None)
  Receive Date: 20060118
  Receipt Date: 20050706
  Transmission Date: 20060701
  Serious: No
  Sender: FDA-Public Use
  Company Number: 2005001271

PATIENT
  Age: 60 Year
  Sex: Female
  Weight: 52.1637 kg

DRUGS (8)
  1. TARCEVA [Suspect]
     Indication: NON-SMALL CELL LUNG CANCER
     Dosage: 150 MG (QD), ORAL; 100 MG (QD), ORAL
     Route: 048
  2. TARCEVA [Suspect]
     Indication: NON-SMALL CELL LUNG CANCER
     Dosage: 150 MG (QD), ORAL; 100 MG (QD), ORAL
     Route: 048
     Dates: start: 20050127
  3. WELLBUTRIN [Concomitant]
  4. PROCARDIA [Concomitant]
  5. OSTEO BI-FLEX (OSTEO BI-FLEX) [Concomitant]
  6. PERCOCET [Concomitant]
  7. OXYCONTIN [Concomitant]
  8. ADVIL [Concomitant]

REACTIONS (4)
  - DRY EYE [None]
  - EYE INFECTION [None]
  - RASH ERYTHEMATOUS [None]
  - RASH MACULAR [None]
